FAERS Safety Report 22044392 (Version 2)
Quarter: 2023Q2

REPORT INFORMATION
  Report Type: Spontaneous
  Country: FR (occurrence: None)
  Receive Date: 20230228
  Receipt Date: 20230417
  Transmission Date: 20230722
  Serious: Yes (Other)
  Sender: FDA-Public Use
  Company Number: 2023A041846

PATIENT
  Age: 62 Year
  Sex: Female
  Weight: 61 kg

DRUGS (2)
  1. DAPAGLIFLOZIN [Suspect]
     Active Substance: DAPAGLIFLOZIN
     Indication: Hypertrophic cardiomyopathy
     Route: 048
     Dates: start: 20221222, end: 20221224
  2. DAPAGLIFLOZIN [Suspect]
     Active Substance: DAPAGLIFLOZIN
     Indication: Hypertrophic cardiomyopathy
     Route: 048
     Dates: start: 20221228, end: 20221230

REACTIONS (2)
  - Peripheral artery thrombosis [Recovered/Resolved with Sequelae]
  - Cardiac failure [Recovering/Resolving]

NARRATIVE: CASE EVENT DATE: 20221224
